FAERS Safety Report 6446437-0 (Version None)
Quarter: 2009Q4

REPORT INFORMATION
  Report Type: 
  Country: None (occurrence: None)
  Receive Date: 20091119
  Receipt Date: 20091109
  Transmission Date: 20100525
  Serious: Yes (Hospitalization)
  Sender: FDA-Public Use
  Company Number: KR-ABBOTT-09P-090-0607779-00

PATIENT
  Age: 77 Year
  Sex: Male

DRUGS (1)
  1. LUCRIN [Suspect]
     Indication: PROSTATE CANCER
     Dates: start: 20080901

REACTIONS (1)
  - INTERSTITIAL LUNG DISEASE [None]
